FAERS Safety Report 9896069 (Version 2)
Quarter: 2014Q1

REPORT INFORMATION
  Report Type: Spontaneous
  Country: US (occurrence: US)
  Receive Date: 20140213
  Receipt Date: 20140213
  Transmission Date: 20141002
  Serious: Yes (Other)
  Sender: FDA-Public Use
  Company Number: US-BRISTOL-MYERS SQUIBB COMPANY-19034735

PATIENT
  Age: 42 Year
  Sex: Female
  Weight: 190 kg

DRUGS (7)
  1. ORENCIA [Suspect]
     Indication: RHEUMATOID ARTHRITIS
  2. GABAPENTIN [Concomitant]
  3. OXYCONTIN [Concomitant]
  4. AMBIEN [Concomitant]
  5. VITAMIN D [Concomitant]
  6. MULTIVITAMIN [Concomitant]
  7. METHOTREXATE [Concomitant]

REACTIONS (2)
  - Pneumonia [Recovered/Resolved]
  - Drug ineffective [Unknown]
